FAERS Safety Report 6456693-0 (Version None)
Quarter: 2009Q4

REPORT INFORMATION
  Report Type: 
  Country: None (occurrence: None)
  Receive Date: 20091120
  Receipt Date: 20091023
  Transmission Date: 20100525
  Serious: No
  Sender: FDA-Public Use
  Company Number: 20097539

PATIENT
  Sex: Male

DRUGS (3)
  1. LIORESAL [Suspect]
     Indication: MUSCLE SPASTICITY
     Dosage: DAILY, INTRATHECAL
     Route: 037
  2. PROVIGIL [Concomitant]
  3. ZOLOFT [Concomitant]

REACTIONS (11)
  - AGITATION [None]
  - ANXIETY [None]
  - DRUG WITHDRAWAL SYNDROME [None]
  - FEELING JITTERY [None]
  - HYPERHIDROSIS [None]
  - MUSCLE TWITCHING [None]
  - MYOCLONUS [None]
  - PRURITUS [None]
  - ROAD TRAFFIC ACCIDENT [None]
  - UNDERDOSE [None]
  - VOMITING [None]
